FAERS Safety Report 9014528 (Version 1)
Quarter: 2013Q1

REPORT INFORMATION
  Report Type: Spontaneous
  Country: US (occurrence: US)
  Receive Date: 20130115
  Receipt Date: 20130115
  Transmission Date: 20140127
  Serious: Yes (Hospitalization, Other)
  Sender: FDA-Public Use
  Company Number: US-009507513-1301USA003457

PATIENT
  Age: 4 Year
  Sex: Female

DRUGS (8)
  1. MONTELUKAST SODIUM [Suspect]
     Indication: ASTHMA
  2. PREDNISOLONE [Suspect]
     Indication: BRONCHIOLITIS
     Dosage: 5 MG, UNK
     Route: 050
  3. CICLESONIDE [Suspect]
     Indication: WHEEZING
     Dosage: 400 MICROGRAM, UNK
  4. HYDROCORTISONE SODIUM PHOSPHATE [Suspect]
  5. SALBUTAMOL [Suspect]
  6. FLUTICASONE PROPIONATE(+)SALMETEROL [Suspect]
     Dosage: 500 MICROGRAM, UNK
     Route: 055
  7. FLUTICASONE PROPIONATE(+)SALMETEROL [Suspect]
     Dosage: 250 MICROGRAM, INHALATION
     Route: 055
  8. FLUTICASONE PROPIONATE(+)SALMETEROL [Suspect]
     Dosage: 500 MICROGRAM, INHALATION
     Route: 055

REACTIONS (4)
  - Wheezing [Unknown]
  - Product substitution issue [Unknown]
  - Fatigue [Unknown]
  - Adrenal suppression [Unknown]
